FAERS Safety Report 25643711 (Version 1)
Quarter: 2025Q3

REPORT INFORMATION
  Report Type: Spontaneous
  Country: US (occurrence: None)
  Receive Date: 20250802
  Receipt Date: 20250802
  Transmission Date: 20251020
  Serious: Yes (Disabling, Other)
  Sender: FDA-CTU
  Company Number: None

PATIENT
  Age: 40 Year
  Sex: Male
  Weight: 123.75 kg

DRUGS (10)
  1. CYANOCOBALAMIN\NALTREXONE\TOPIRAMATE [Suspect]
     Active Substance: CYANOCOBALAMIN\NALTREXONE\TOPIRAMATE
     Indication: Obesity
     Dosage: FREQUENCY : DAILY;?
     Route: 048
     Dates: start: 20250404, end: 20250624
  2. Naltrexone HCL 14mg [Concomitant]
  3. Vitamin B12 1mg tablet [Concomitant]
  4. twice a day Bupropion HCL ER (XL) 300mg tablet [Concomitant]
  5. daily Fluoxetine 22.4mg [Concomitant]
  6. Tadalafil 8.5mg tablet [Concomitant]
  7. daily Metformin HCL ER 500mg tablet [Concomitant]
  8. daily Losartan Potassium 25mg tablet [Concomitant]
  9. ThinkEase (nootropic supplement) [Concomitant]
  10. AMLODIPINE [Suspect]
     Active Substance: AMLODIPINE BESYLATE

REACTIONS (15)
  - Therapy change [None]
  - Cognitive disorder [None]
  - Fatigue [None]
  - Lethargy [None]
  - Brain fog [None]
  - Confusional state [None]
  - Memory impairment [None]
  - Disturbance in attention [None]
  - Feeling cold [None]
  - Palpitations [None]
  - Chest discomfort [None]
  - Flat affect [None]
  - Apathy [None]
  - Apathy [None]
  - Loss of personal independence in daily activities [None]

NARRATIVE: CASE EVENT DATE: 20250410
